FAERS Safety Report 8392351-3 (Version None)
Quarter: 2012Q2

REPORT INFORMATION
  Report Type: 
  Country: None (occurrence: None)
  Receive Date: 20120529
  Receipt Date: 20120514
  Transmission Date: 20120825
  Serious: Yes (Other)
  Sender: FDA-Public Use
  Company Number: CN-ROCHE-1067103

PATIENT

DRUGS (1)
  1. AVASTIN [Suspect]
     Indication: PRODUCT USED FOR UNKNOWN INDICATION

REACTIONS (9)
  - MALIGNANT HYPERTENSION [None]
  - THROMBOTIC MICROANGIOPATHY [None]
  - GLOMERULONEPHRITIS [None]
  - GLOMERULONEPHRITIS MEMBRANOPROLIFERATIVE [None]
  - GLOMERULONEPHRITIS PROLIFERATIVE [None]
  - RENAL IMPAIRMENT [None]
  - HAEMOLYTIC URAEMIC SYNDROME [None]
  - FOCAL SEGMENTAL GLOMERULOSCLEROSIS [None]
  - NEPHROSCLEROSIS [None]
